FAERS Safety Report 7003961-X (Version None)
Quarter: 2010Q3

REPORT INFORMATION
  Report Type: 
  Country: None (occurrence: None)
  Receive Date: 20100920
  Receipt Date: 20091215
  Transmission Date: 20110219
  Serious: No
  Sender: FDA-Public Use
  Company Number: US-WYE-H12655709

PATIENT
  Sex: Female
  Weight: 88.53 kg

DRUGS (3)
  1. PRISTIQ [Suspect]
     Indication: DEPRESSION
     Route: 048
     Dates: start: 20091101
  2. XANAX [Concomitant]
  3. VICODIN [Concomitant]

REACTIONS (10)
  - AFFECT LABILITY [None]
  - ANGER [None]
  - COUGH [None]
  - CRYING [None]
  - FATIGUE [None]
  - FEELING ABNORMAL [None]
  - HYPERHIDROSIS [None]
  - MOOD SWINGS [None]
  - SLEEP DISORDER [None]
  - SOCIAL AVOIDANT BEHAVIOUR [None]
